FAERS Safety Report 16209745 (Version 1)
Quarter: 2019Q2

REPORT INFORMATION
  Report Type: Report from Study
  Country: US (occurrence: US)
  Receive Date: 20190417
  Receipt Date: 20190417
  Transmission Date: 20190711
  Serious: Yes (Other)
  Sender: FDA-Public Use
  Company Number: US-BAUSCH-BL-2019-010940

PATIENT
  Age: 29 Year
  Sex: Male

DRUGS (1)
  1. SILIQ [Suspect]
     Active Substance: BRODALUMAB
     Indication: PRODUCT USED FOR UNKNOWN INDICATION
     Dosage: PFS (PREFILLED SYRINGE) 210 MG/1.5 ML
     Route: 065
     Dates: start: 201803

REACTIONS (2)
  - Inappropriate schedule of product administration [Unknown]
  - Haematochezia [Unknown]

NARRATIVE: CASE EVENT DATE: 20190327
